FAERS Safety Report 5338937-1 (Version None)
Quarter: 2007Q2

REPORT INFORMATION
  Report Type: 
  Country: None (occurrence: None)
  Receive Date: 20070404
  Receipt Date: 20060201
  Transmission Date: 20071010
  Serious: Yes (Other)
  Sender: FDA-Public Use
  Company Number: HQWYE694307FEB06

PATIENT
  Age: 51 Year
  Sex: Female
  Weight: 54.48 kg

DRUGS (3)
  1. ALAVERT [Suspect]
     Indication: HYPERSENSITIVITY
     Dosage: 1 TABLET 2X PER 1 DAY, ORAL
     Route: 048
     Dates: start: 20060101, end: 20060101
  2. CALCIUM (CALCIUM) [Concomitant]
  3. EVISTA [Concomitant]

REACTIONS (1)
  - DRUG INEFFECTIVE [None]
